FAERS Safety Report 6233110-7 (Version None)
Quarter: 2009Q2

REPORT INFORMATION
  Report Type: 
  Country: None (occurrence: None)
  Receive Date: 20090617
  Receipt Date: 20090604
  Transmission Date: 20091009
  Serious: Yes (Other)
  Sender: FDA-Public Use
  Company Number: IT-ELI_LILLY_AND_COMPANY-IT200906001305

PATIENT
  Sex: Male

DRUGS (4)
  1. CYMBALTA [Suspect]
     Dosage: 30 MG, UNKNOWN
     Route: 048
     Dates: start: 20080101
  2. CYMBALTA [Suspect]
     Dosage: 60 MG, UNKNOWN
     Route: 048
  3. MADOPAR [Concomitant]
     Dosage: UNK, UNKNOWN
     Route: 065
  4. MIRAPEX [Concomitant]
     Dosage: UNK, UNKNOWN
     Route: 065

REACTIONS (4)
  - ABNORMAL DREAMS [None]
  - CATARACT [None]
  - GINGIVITIS [None]
  - VISUAL ACUITY REDUCED [None]
